FAERS Safety Report 7755433-2 (Version None)
Quarter: 2011Q3

REPORT INFORMATION
  Report Type: 
  Country: None (occurrence: None)
  Receive Date: 20110916
  Receipt Date: 20110903
  Transmission Date: 20111222
  Serious: Yes (Hospitalization)
  Sender: FDA-Public Use
  Company Number: HK-MYLANLABS-2011S1018694

PATIENT
  Age: 21 Year
  Sex: Female

DRUGS (1)
  1. METHADONE HCL [Suspect]
     Indication: ACCIDENTAL OVERDOSE
     Route: 048

REACTIONS (13)
  - ACCIDENTAL OVERDOSE [None]
  - BLOOD CORTISOL INCREASED [None]
  - RESPIRATORY DEPRESSION [None]
  - ELECTROCARDIOGRAM QT PROLONGED [None]
  - PLATELET COUNT INCREASED [None]
  - BLOOD CREATININE INCREASED [None]
  - ALANINE AMINOTRANSFERASE INCREASED [None]
  - TROPONIN I INCREASED [None]
  - PNEUMONIA [None]
  - COMA [None]
  - HYPOTENSION [None]
  - HYPOGLYCAEMIA [None]
  - BLOOD CREATINE PHOSPHOKINASE INCREASED [None]
